FAERS Safety Report 23262806 (Version 1)
Quarter: 2023Q4

REPORT INFORMATION
  Report Type: Report from Study
  Country: CA (occurrence: CA)
  Receive Date: 20231205
  Receipt Date: 20231205
  Transmission Date: 20240110
  Serious: Yes (Other)
  Sender: FDA-Public Use
  Company Number: CA-MYLANLABS-2023M1128623

PATIENT

DRUGS (1)
  1. HULIO [Suspect]
     Active Substance: ADALIMUMAB-FKJP
     Indication: Crohn^s disease
     Dosage: 80 MILLIGRAM, QW (WEEKLY)
     Route: 065

REACTIONS (5)
  - Intestinal dilatation [Unknown]
  - Oesophageal disorder [Unknown]
  - Psoriasis [Unknown]
  - Arthritis [Unknown]
  - Off label use [Unknown]
